FAERS Safety Report 8184934-0 (Version None)
Quarter: 2012Q1

REPORT INFORMATION
  Report Type: 
  Country: None (occurrence: None)
  Receive Date: 20120305
  Receipt Date: 20120228
  Transmission Date: 20120608
  Serious: Yes (Death)
  Sender: FDA-Public Use
  Company Number: PE-GLAXOSMITHKLINE-A0968430A

PATIENT
  Sex: Male

DRUGS (2)
  1. FLUTICASONE PROPIONATE/SALMETEROL [Suspect]
     Indication: PULMONARY FIBROSIS
     Dosage: 4PUFF PER DAY
     Route: 055
     Dates: start: 20110513
  2. ATROVENT [Concomitant]
     Route: 055

REACTIONS (1)
  - NEOPLASM MALIGNANT [None]
